FAERS Safety Report 7554215-4 (Version None)
Quarter: 2011Q2

REPORT INFORMATION
  Report Type: 
  Country: None (occurrence: None)
  Receive Date: 20110617
  Receipt Date: 20110606
  Transmission Date: 20111010
  Serious: Yes (Hospitalization, Other)
  Sender: FDA-Public Use
  Company Number: US-PFIZER INC-2011128710

PATIENT
  Age: 11 Year
  Sex: Male

DRUGS (5)
  1. ONDANSETRON [Suspect]
     Dosage: UNK
     Route: 065
  2. THIOPENTAL SODIUM [Suspect]
     Route: 065
  3. ISOFLURANE [Suspect]
     Indication: GENERAL ANAESTHESIA
     Dosage: UNK
     Route: 045
  4. PANCURONIUM [Suspect]
     Route: 065
  5. PROPOFOL [Suspect]
     Dosage: UNK
     Route: 065

REACTIONS (2)
  - DRUG INTERACTION [None]
  - TORSADE DE POINTES [None]
